FAERS Safety Report 7504640-2 (Version None)
Quarter: 2011Q2

REPORT INFORMATION
  Report Type: 
  Country: None (occurrence: None)
  Receive Date: 20110525
  Receipt Date: 20110406
  Transmission Date: 20111010
  Serious: No
  Sender: FDA-Public Use
  Company Number: US-AMGEN-KDL388604

PATIENT
  Age: 59 Year
  Sex: Female

DRUGS (3)
  1. NPLATE [Suspect]
     Dosage: 36 A?G/KG, UNK
     Dates: end: 20100204
  2. NPLATE [Suspect]
     Dosage: 75 A?G, UNK
     Dates: start: 20070517, end: 20091203
  3. NPLATE [Suspect]
     Indication: IDIOPATHIC THROMBOCYTOPENIC PURPURA
     Dosage: 75 A?G, UNK
     Dates: start: 20091210

REACTIONS (2)
  - PLATELET COUNT INCREASED [None]
  - TOOTH INFECTION [None]
